FAERS Safety Report 9829905 (Version 2)
Quarter: 2014Q1

REPORT INFORMATION
  Report Type: Spontaneous
  Country: US (occurrence: US)
  Receive Date: 20140120
  Receipt Date: 20140120
  Transmission Date: 20141002
  Serious: Yes (Hospitalization)
  Sender: FDA-Public Use
  Company Number: US-ASTELLAS-2013US008616

PATIENT
  Age: 55 Year
  Sex: Female
  Weight: 70 kg

DRUGS (1)
  1. PROGRAF [Suspect]
     Indication: LIVER TRANSPLANT
     Dosage: 2 MG AM, 1 MG PM
     Route: 048
     Dates: start: 20100923

REACTIONS (4)
  - Hepatic cirrhosis [Unknown]
  - Hepatic steatosis [Unknown]
  - Renal failure [Unknown]
  - Memory impairment [Unknown]
